FAERS Safety Report 16690957 (Version 4)
Quarter: 2019Q4

REPORT INFORMATION
  Report Type: Spontaneous
  Country: JP (occurrence: JP)
  Receive Date: 20190812
  Receipt Date: 20191031
  Transmission Date: 20200122
  Serious: Yes (Other)
  Sender: FDA-Public Use
  Company Number: JP-AMGEN-JPNSP2019126742

PATIENT
  Age: 87 Year
  Sex: Female
  Weight: 31 kg

DRUGS (8)
  1. EVENITY [Suspect]
     Active Substance: ROMOSOZUMAB-AQQG
     Indication: OSTEOPOROSIS
     Dosage: 210 MILLIGRAM
     Route: 058
     Dates: start: 20190425
  2. ALFACALCIDOL [Concomitant]
     Active Substance: ALFACALCIDOL
     Indication: OSTEOPOROSIS
     Dosage: 0.5 MICROGRAM, QD
     Route: 065
     Dates: start: 20190725
  3. CELECOX [Suspect]
     Active Substance: CELECOXIB
     Indication: SPINAL COMPRESSION FRACTURE
     Dosage: 100 MILLIGRAM, BID
     Route: 065
     Dates: start: 20190408, end: 20190530
  4. EDIROL [Suspect]
     Active Substance: ELDECALCITOL
     Indication: OSTEOPOROSIS
     Dosage: 0.75 MICROGRAM, QD
     Route: 065
     Dates: start: 20190425, end: 20190725
  5. LYRICA [Suspect]
     Active Substance: PREGABALIN
     Indication: SCIATICA
     Dosage: 50 MILLIGRAM, QD
     Route: 065
     Dates: start: 20190408, end: 20190725
  6. CALONAL [Concomitant]
     Active Substance: ACETAMINOPHEN
     Indication: HEADACHE
     Dosage: 400 MILLIGRAM
     Route: 065
  7. MOHRUS [Concomitant]
     Active Substance: KETOPROFEN
     Indication: BACK PAIN
     Dosage: UNK
  8. NORVASC [Concomitant]
     Active Substance: AMLODIPINE BESYLATE
     Indication: HYPERTENSION
     Dosage: 5 MILLIGRAM, QD
     Route: 065

REACTIONS (1)
  - Renal impairment [Not Recovered/Not Resolved]

NARRATIVE: CASE EVENT DATE: 20190530
